FAERS Safety Report 6270947-2 (Version None)
Quarter: 2009Q3

REPORT INFORMATION
  Report Type: 
  Country: None (occurrence: None)
  Receive Date: 20090716
  Receipt Date: 20090710
  Transmission Date: 20100115
  Serious: Yes (Hospitalization, Other)
  Sender: FDA-Public Use
  Company Number: US-ELI_LILLY_AND_COMPANY-US200708003030

PATIENT
  Sex: Female

DRUGS (7)
  1. FORTEO [Suspect]
     Indication: OSTEOPOROSIS
     Dosage: UNK, UNK
     Dates: start: 20040101, end: 20050101
  2. FORTEO [Suspect]
     Dates: start: 20061014
  3. FORTEO [Suspect]
     Dosage: UNK, UNK
     Dates: start: 20070716
  4. FORTEO [Suspect]
  5. DIAZEPAM [Concomitant]
  6. AMITRIPTYLINE [Concomitant]
     Indication: SLEEP DISORDER THERAPY
     Dosage: AT BEDTIME
  7. VICODIN [Concomitant]
     Indication: PAIN
     Dosage: UNK, AS NEEDED

REACTIONS (4)
  - FALL [None]
  - FRACTURE [None]
  - MOBILITY DECREASED [None]
  - PELVIC FRACTURE [None]
